FAERS Safety Report 4322559-5 (Version None)
Quarter: 2004Q1

REPORT INFORMATION
  Report Type: 
  Country: None (occurrence: None)
  Receive Date: 20040319
  Receipt Date: 20040308
  Transmission Date: 20041129
  Serious: No
  Sender: FDA-Public Use
  Company Number: 04P-044-0252783-00

PATIENT
  Age: 77 Year
  Sex: Female

DRUGS (4)
  1. ULTIVA [Suspect]
     Indication: NEUROMUSCULAR BLOCKADE
     Dosage: 50 MCG, INTRAVENOUS BOLUS
     Route: 040
  2. VERAPAMIL [Concomitant]
  3. DIAZEPAM [Concomitant]
  4. CITALOPRAM [Concomitant]

REACTIONS (3)
  - GRAND MAL CONVULSION [None]
  - LOSS OF CONSCIOUSNESS [None]
  - MEMORY IMPAIRMENT [None]
